FAERS Safety Report 24769512 (Version 4)
Quarter: 2025Q1

REPORT INFORMATION
  Report Type: Spontaneous
  Country: US (occurrence: US)
  Receive Date: 20241224
  Receipt Date: 20250307
  Transmission Date: 20250409
  Serious: No
  Sender: BIOVITRUM
  Company Number: US-BIOVITRUM-2024-US-016222

PATIENT
  Age: 68 Year
  Sex: Male

DRUGS (6)
  1. VONJO [Suspect]
     Active Substance: PACRITINIB
     Indication: Myeloproliferative neoplasm
     Route: 048
     Dates: start: 20241212
  2. JAKAFI [Suspect]
     Active Substance: RUXOLITINIB
     Indication: Product used for unknown indication
  3. VITAMINS [Concomitant]
     Active Substance: VITAMINS
     Indication: Product used for unknown indication
  4. IRBESARTAN [Concomitant]
     Active Substance: IRBESARTAN
     Indication: Product used for unknown indication
  5. VERAPAMIL [Concomitant]
     Active Substance: VERAPAMIL HYDROCHLORIDE
     Indication: Product used for unknown indication
  6. FAMOTIDINE [Concomitant]
     Active Substance: FAMOTIDINE
     Indication: Product used for unknown indication

REACTIONS (19)
  - Diarrhoea [Unknown]
  - Hypotension [Unknown]
  - Cough [Unknown]
  - Salivary hypersecretion [Unknown]
  - Dizziness [Unknown]
  - Balance disorder [Unknown]
  - Dry throat [Unknown]
  - Sleep disorder [Unknown]
  - Decreased appetite [Unknown]
  - Taste disorder [Unknown]
  - Peripheral swelling [Unknown]
  - Condition aggravated [Unknown]
  - Asthenia [Unknown]
  - Fatigue [Unknown]
  - Muscular weakness [Unknown]
  - Constipation [Unknown]
  - Gastrooesophageal reflux disease [Unknown]
  - Dry skin [Unknown]
  - Nausea [Unknown]
